FAERS Safety Report 19394448 (Version 1)
Quarter: 2021Q2

REPORT INFORMATION
  Report Type: Spontaneous
  Country: GB (occurrence: GB)
  Receive Date: 20210609
  Receipt Date: 20210609
  Transmission Date: 20210717
  Serious: Yes (Other)
  Sender: FDA-Public Use
  Company Number: GB-MYLANLABS-2021M1033038

PATIENT
  Age: 31 Year
  Sex: Male
  Weight: 73 kg

DRUGS (2)
  1. NIACINAMIDE [Suspect]
     Active Substance: NIACINAMIDE
     Indication: PREMATURE AGEING
     Dosage: 1 DOSAGE FORM, QD
     Route: 061
     Dates: start: 20210410, end: 20210414
  2. TRETINOIN. [Suspect]
     Active Substance: TRETINOIN
     Indication: PREMATURE AGEING
     Dosage: 1 DOSAGE FORM, QD
     Route: 061
     Dates: start: 20210410, end: 20210413

REACTIONS (6)
  - Photosensitivity reaction [Unknown]
  - Dysgeusia [Unknown]
  - Headache [Recovered/Resolved]
  - Fatigue [Recovered/Resolved]
  - Sinusitis [Unknown]
  - Chromaturia [Unknown]

NARRATIVE: CASE EVENT DATE: 202104
